FAERS Safety Report 12634310 (Version 1)
Quarter: 2016Q3

REPORT INFORMATION
  Report Type: Report from Study
  Country: US (occurrence: US)
  Receive Date: 20160808
  Receipt Date: 20160808
  Transmission Date: 20161109
  Serious: Yes (Hospitalization, Other)
  Sender: FDA-Public Use
  Company Number: US-ABBVIE-16K-163-1691699-00

PATIENT
  Sex: Female

DRUGS (1)
  1. HUMIRA [Suspect]
     Active Substance: ADALIMUMAB
     Indication: PSORIASIS
     Route: 058
     Dates: start: 20160527

REACTIONS (11)
  - Frustration tolerance decreased [Unknown]
  - Emotional disorder [Unknown]
  - Pneumonia aspiration [Unknown]
  - Helplessness [Unknown]
  - Impaired quality of life [Unknown]
  - Rash [Unknown]
  - Pruritus [Unknown]
  - Anger [Unknown]
  - Emotional distress [Unknown]
  - Pain [Unknown]
  - Skin irritation [Unknown]

NARRATIVE: CASE EVENT DATE: 2016
